FAERS Safety Report 5066345-X (Version None)
Quarter: 2006Q3

REPORT INFORMATION
  Report Type: 
  Country: None (occurrence: None)
  Receive Date: 20060728
  Receipt Date: 20060720
  Transmission Date: 20061208
  Serious: Yes (Death)
  Sender: FDA-Public Use
  Company Number: SP-2006-003117

PATIENT
  Age: 44 Year
  Sex: Male

DRUGS (5)
  1. BENICAR [Suspect]
     Indication: HYPERTENSION
     Dates: start: 20060101
  2. NORVASC [Suspect]
     Dates: start: 20060101
  3. AMLODIPINE [Suspect]
     Dates: start: 20060101
  4. AMITRIPTYL [Concomitant]
  5. EFFEXOR [Concomitant]

REACTIONS (8)
  - ARTERIOSCLEROSIS CORONARY ARTERY [None]
  - CARDIOMEGALY [None]
  - COMPLETED SUICIDE [None]
  - CONTUSION [None]
  - EXCORIATION [None]
  - INCORRECT DOSE ADMINISTERED [None]
  - PULMONARY CONGESTION [None]
  - PULMONARY OEDEMA [None]
